FAERS Safety Report 5162887-7 (Version None)
Quarter: 2006Q4

REPORT INFORMATION
  Report Type: 
  Country: None (occurrence: None)
  Receive Date: 20061201
  Receipt Date: 20030617
  Transmission Date: 20070319
  Serious: Yes (Life-Threatening, Hospitalization)
  Sender: FDA-Public Use
  Company Number: AU-ROCHE-340214

PATIENT
  Age: 49 Year
  Sex: Male

DRUGS (4)
  1. PEG-INTERFERON ALFA 2A (RO 25-8310) [Suspect]
     Route: 058
     Dates: start: 20030221
  2. RIBAVIRIN [Suspect]
     Route: 048
     Dates: start: 20030221
  3. MILK THISTLE [Concomitant]
     Dates: start: 20020915
  4. ST JOHN'S WORT [Concomitant]
     Dates: start: 20030315

REACTIONS (2)
  - ATRIOVENTRICULAR BLOCK THIRD DEGREE [None]
  - VENTRICULAR HYPERTROPHY [None]
